FAERS Safety Report 13219934 (Version 2)
Quarter: 2021Q3

REPORT INFORMATION
  Report Type: Other
  Country: US (occurrence: US)
  Receive Date: 20170210
  Receipt Date: 20210817
  Transmission Date: 20211014
  Serious: Yes (Other)
  Sender: FDA-Public Use
  Company Number: US-ROCHE-1890994

PATIENT
  Age: 78 Year
  Sex: Female

DRUGS (1)
  1. ACTILYSE [Suspect]
     Active Substance: ALTEPLASE
     Indication: RETINAL ARTERY OCCLUSION
     Dosage: ROUTE: MICROCATHETER POSITIONED IN THE LEFT
     Route: 050

REACTIONS (4)
  - Aortic arteriosclerosis [Unknown]
  - Cerebral infarction [Recovering/Resolving]
  - Aortic valve calcification [Unknown]
  - Coronary artery stenosis [Unknown]
